FAERS Safety Report 19046861 (Version 2)
Quarter: 2022Q4

REPORT INFORMATION
  Report Type: Spontaneous
  Country: US (occurrence: US)
  Receive Date: 20210323
  Receipt Date: 20221018
  Transmission Date: 20230113
  Serious: Yes (Other)
  Sender: FDA-Public Use
  Company Number: US-SA-SAC20210319000684

PATIENT
  Age: 65 Year
  Sex: Female

DRUGS (1)
  1. ZANTAC [Suspect]
     Active Substance: RANITIDINE HYDROCHLORIDE
     Indication: Gastrooesophageal reflux disease
     Dosage: UNK, QD
     Route: 065
     Dates: start: 200003, end: 201908

REACTIONS (3)
  - Skin cancer [Unknown]
  - Breast cancer female [Unknown]
  - Gastric cancer [Unknown]

NARRATIVE: CASE EVENT DATE: 20040101
